FAERS Safety Report 14551965 (Version 2)
Quarter: 2018Q2

REPORT INFORMATION
  Report Type: Spontaneous
  Country: US (occurrence: US)
  Receive Date: 20180220
  Receipt Date: 20180403
  Transmission Date: 20180711
  Serious: No
  Sender: FDA-Public Use
  Company Number: US-PFIZER INC-2018071001

PATIENT
  Age: 13 Year
  Sex: Male

DRUGS (1)
  1. GENOTROPIN [Suspect]
     Active Substance: SOMATROPIN
     Indication: GROWTH HORMONE DEFICIENCY
     Dosage: 1.4 MG, DAILY
     Route: 058

REACTIONS (6)
  - Musculoskeletal pain [Unknown]
  - Flatulence [Unknown]
  - Arthralgia [Unknown]
  - Abdominal pain [Unknown]
  - Abdominal distension [Unknown]
  - Irritability [Unknown]
